FAERS Safety Report 16701639 (Version 1)
Quarter: 2019Q3

REPORT INFORMATION
  Report Type: Spontaneous
  Country: US (occurrence: US)
  Receive Date: 20190706
  Receipt Date: 20190706
  Transmission Date: 20191004
  Serious: Yes (Life-Threatening, Hospitalization, Disabling)
  Sender: FDA-Public Use
  Company Number: None

PATIENT
  Sex: Male

DRUGS (1)
  1. CLENBUTEROL [Suspect]
     Active Substance: CLENBUTEROL
     Indication: PHYSICAL FITNESS TRAINING
     Route: 048
     Dates: start: 20190701, end: 20190703

REACTIONS (3)
  - Poor quality product administered [None]
  - Cardiac disorder [None]
  - Legal problem [None]

NARRATIVE: CASE EVENT DATE: 20190703
